FAERS Safety Report 5380915-0 (Version None)
Quarter: 2007Q3

REPORT INFORMATION
  Report Type: 
  Country: None (occurrence: None)
  Receive Date: 20070706
  Receipt Date: 20070627
  Transmission Date: 20080115
  Serious: Yes (Hospitalization)
  Sender: FDA-Public Use
  Company Number: US-ELI_LILLY_AND_COMPANY-US200706006030

PATIENT
  Age: 63 Year
  Sex: Female
  Weight: 80.725 kg

DRUGS (11)
  1. BYETTA [Suspect]
     Indication: TYPE 2 DIABETES MELLITUS
     Dosage: 5 UG, 2/D
     Route: 058
     Dates: start: 20070101, end: 20070101
  2. BYETTA [Suspect]
     Dosage: 10 UG, 2/D
     Route: 058
     Dates: start: 20070101
  3. METFORMIN HCL [Concomitant]
     Indication: DIABETES MELLITUS
     Dosage: 1000 MG, 2/D
  4. PRANDIN /USA/ [Concomitant]
     Indication: DIABETES MELLITUS
     Dosage: 1.5 MG, 3/D
     Dates: start: 20060101
  5. LEVOTHYROXINE SODIUM [Concomitant]
     Indication: THYROID DISORDER
     Dosage: 0.025 MG, 3/W
     Dates: start: 20060101
  6. LEVOTHYROXINE SODIUM [Concomitant]
     Dosage: 0.15 MG, DAILY (1/D)
     Dates: start: 20050101
  7. CALCITRIOL [Concomitant]
     Indication: THYROID DISORDER
     Dosage: 1 UG, DAILY (1/D)
     Dates: start: 20050101
  8. CALCIUM WITH VITAMIN D [Concomitant]
     Indication: SUPPLEMENTATION THERAPY
     Dosage: 600 MG, UNK
     Dates: start: 20050101
  9. PREMARIN [Concomitant]
     Indication: NIGHT SWEATS
     Dosage: 0.625 MG, DAILY (1/D)
  10. CARDIZEM [Concomitant]
     Indication: HYPERTENSION
     Dosage: 300 MG, DAILY (1/D)
  11. FUROSEMIDE [Concomitant]
     Indication: HYPERTENSION
     Dosage: 20 MG, DAILY (1/D)

REACTIONS (3)
  - BLOOD CALCIUM DECREASED [None]
  - BLOOD MAGNESIUM DECREASED [None]
  - PARAESTHESIA [None]
